FAERS Safety Report 19265096 (Version 1)
Quarter: 2021Q2

REPORT INFORMATION
  Report Type: Not Available
  Country: None (occurrence: None)
  Receive Date: 20210517
  Receipt Date: 20210517
  Transmission Date: 20210717
  Serious: Yes (Other)
  Sender: FDA-Public Use
  Company Number: US-AKORN-166954

PATIENT
  Age: 23 Year
  Sex: Male

DRUGS (1)
  1. MYORISAN [Suspect]
     Active Substance: ISOTRETINOIN

REACTIONS (4)
  - Mood swings [None]
  - Bradyphrenia [None]
  - Dry skin [None]
  - Epistaxis [None]
